FAERS Safety Report 13923775 (Version 1)
Quarter: 2017Q3

REPORT INFORMATION
  Report Type: Spontaneous
  Country: US (occurrence: US)
  Receive Date: 20170831
  Receipt Date: 20170831
  Transmission Date: 20171127
  Serious: No
  Sender: FDA-Public Use
  Company Number: US-PFIZER INC-2017373164

PATIENT
  Age: 86 Year
  Sex: Female
  Weight: 59 kg

DRUGS (16)
  1. POTASSIUM CHLORIDE. [Concomitant]
     Active Substance: POTASSIUM CHLORIDE
     Indication: BLOOD PRESSURE ABNORMAL
     Dosage: 10 MEQ, 3X/DAY
     Dates: start: 201512
  2. VITAMIN D /00107901/ [Concomitant]
     Active Substance: ERGOCALCIFEROL
     Indication: SUPPLEMENTATION THERAPY
     Dosage: 1000 MG, DAILY
     Dates: start: 201512
  3. ASPIRIN /00002701/ [Concomitant]
     Active Substance: ASPIRIN
     Indication: ANTICOAGULANT THERAPY
     Dosage: 81 MG, 1X/DAY
     Dates: start: 201512
  4. NEXIUM 24HR [Concomitant]
     Active Substance: ESOMEPRAZOLE MAGNESIUM
     Indication: DYSPEPSIA
     Dosage: 20 MG, 1X/DAY
     Dates: start: 201512
  5. LEVOTHYROXINE. [Concomitant]
     Active Substance: LEVOTHYROXINE
     Indication: BLOOD PRESSURE ABNORMAL
     Dosage: 50 MG, 1X/DAY
     Dates: start: 201512
  6. MIRTAZAPINE. [Concomitant]
     Active Substance: MIRTAZAPINE
     Indication: DEPRESSION
     Dosage: 75 MG, 1X/DAY
     Dates: start: 201512
  7. DOXYCYCLINE HYCLATE. [Concomitant]
     Active Substance: DOXYCYCLINE HYCLATE
     Indication: ANTIBIOTIC THERAPY
     Dosage: 100 MG, 2X/DAY
  8. METOPROLOL TARTRATE. [Concomitant]
     Active Substance: METOPROLOL TARTRATE
     Indication: BLOOD PRESSURE ABNORMAL
     Dosage: UNK UNK, 1X/DAY
     Dates: start: 201512
  9. GABAPENTIN. [Suspect]
     Active Substance: GABAPENTIN
     Dosage: 300 MG, 2X/DAY
     Route: 048
  10. ELIQUIS [Concomitant]
     Active Substance: APIXABAN
     Indication: ANTICOAGULANT THERAPY
     Dosage: 2.5 MG, 2X/DAY
     Dates: start: 201512
  11. NYSTATIN. [Concomitant]
     Active Substance: NYSTATIN
     Indication: FUNGAL INFECTION
     Dosage: UNK UNK, 2X/DAY
     Dates: start: 20170612
  12. HYDROCODONE [Concomitant]
     Active Substance: HYDROCODONE
     Indication: PAIN
     Dosage: 7.5MG-325 FOUR TIMES A DAY, AS NEEDED
  13. FUROSEMIDE. [Concomitant]
     Active Substance: FUROSEMIDE
     Indication: FLUID RETENTION
     Dosage: 20 MG, 1X/DAY
     Dates: start: 201512
  14. LOSARTAN POTASSIUM. [Concomitant]
     Active Substance: LOSARTAN POTASSIUM
     Indication: BLOOD PRESSURE ABNORMAL
     Dosage: UNK UNK, 2X/DAY
     Dates: start: 201512
  15. HYDRALAZINE [Concomitant]
     Active Substance: HYDRALAZINE HYDROCHLORIDE
     Indication: BLOOD PRESSURE ABNORMAL
     Dosage: 25 MG, 4X/DAY
     Dates: start: 201512
  16. AMLODIPINE BESYLATE. [Concomitant]
     Active Substance: AMLODIPINE BESYLATE
     Indication: BLOOD PRESSURE ABNORMAL
     Dosage: 10 MG, 1X/DAY

REACTIONS (4)
  - Swelling face [Unknown]
  - Drug ineffective [Unknown]
  - Mouth swelling [Unknown]
  - Peripheral swelling [Unknown]
